FAERS Safety Report 12785744 (Version 1)
Quarter: 2016Q3

REPORT INFORMATION
  Report Type: Spontaneous
  Country: US (occurrence: US)
  Receive Date: 20160927
  Receipt Date: 20160927
  Transmission Date: 20161109
  Serious: No
  Sender: FDA-Public Use
  Company Number: US-FRI-1000080329

PATIENT
  Age: 54 Year
  Sex: Female

DRUGS (2)
  1. LINZESS [Suspect]
     Active Substance: LINACLOTIDE
     Indication: INTESTINAL OBSTRUCTION
     Dosage: UNK UNK, QD
     Dates: start: 2015, end: 201510
  2. LINZESS [Suspect]
     Active Substance: LINACLOTIDE
     Indication: COELIAC DISEASE

REACTIONS (2)
  - Rash [Recovering/Resolving]
  - Off label use [Recovered/Resolved]

NARRATIVE: CASE EVENT DATE: 2015
